FAERS Safety Report 5490225-9 (Version None)
Quarter: 2007Q4

REPORT INFORMATION
  Report Type: 
  Country: None (occurrence: None)
  Receive Date: 20071017
  Receipt Date: 20071010
  Transmission Date: 20080405
  Serious: Yes (Hospitalization)
  Sender: FDA-Public Use
  Company Number: TAP2007Q01335

PATIENT
  Age: 93 Year
  Sex: Female

DRUGS (1)
  1. PREVACID [Suspect]
     Dates: end: 20050801

REACTIONS (1)
  - HIP FRACTURE [None]
